FAERS Safety Report 5372485-8 (Version None)
Quarter: 2007Q2

REPORT INFORMATION
  Report Type: 
  Country: None (occurrence: None)
  Receive Date: 20070620
  Receipt Date: 20070430
  Transmission Date: 20071010
  Serious: No
  Sender: FDA-Public Use
  Company Number: 2007RL000200

PATIENT
  Sex: Male

DRUGS (3)
  1. OMACOR [Suspect]
     Indication: BLOOD TRIGLYCERIDES INCREASED
     Dosage: 4 GM; QD; PO; 2 GM; QD; PO
     Route: 048
     Dates: start: 20070429, end: 20070429
  2. OMACOR [Suspect]
     Indication: BLOOD TRIGLYCERIDES INCREASED
     Dosage: 4 GM; QD; PO; 2 GM; QD; PO
     Route: 048
     Dates: start: 20070430
  3. SYNTHROID [Concomitant]

REACTIONS (2)
  - BOWEL SOUNDS ABNORMAL [None]
  - INTENTIONAL DRUG MISUSE [None]
